FAERS Safety Report 9466298 (Version 1)
Quarter: 2013Q3

REPORT INFORMATION
  Report Type: Spontaneous
  Country: CA (occurrence: CA)
  Receive Date: 20130820
  Receipt Date: 20130820
  Transmission Date: 20140515
  Serious: Yes (Hospitalization, Disabling)
  Sender: FDA-Public Use
  Company Number: CA-B.I. PHARMACEUTICALS,INC./RIDGEFIELD-2013-BI-24543BP

PATIENT
  Sex: Male

DRUGS (1)
  1. MIRAPEX [Suspect]
     Indication: PARKINSON^S DISEASE

REACTIONS (6)
  - Cardiac failure [Unknown]
  - Hypersexuality [Unknown]
  - Optic atrophy [Unknown]
  - Pathological gambling [Recovered/Resolved]
  - Compulsive shopping [Unknown]
  - Binge eating [Unknown]
